FAERS Safety Report 19912834 (Version 1)
Quarter: 2021Q4

REPORT INFORMATION
  Report Type: Spontaneous
  Country: US (occurrence: US)
  Receive Date: 20211004
  Receipt Date: 20211004
  Transmission Date: 20220304
  Serious: Yes (Hospitalization)
  Sender: FDA-Public Use
  Company Number: US-AVEO ONCOLOGY-2021-AVEO-US003577

PATIENT

DRUGS (11)
  1. FOTIVDA [Suspect]
     Active Substance: TIVOZANIB HYDROCHLORIDE
     Indication: Renal cell carcinoma
     Dosage: 1.34 MG, DAILY TAKEN BY MOUTH FOR 21 DAYS, FOLLOWED BY A 7-DAY BREAK
     Route: 048
     Dates: start: 20210907
  2. ATIVAN [Concomitant]
     Active Substance: LORAZEPAM
  3. FUROSEMIDE [Concomitant]
     Active Substance: FUROSEMIDE
  4. HYDROCORTISONE [Concomitant]
     Active Substance: HYDROCORTISONE
  5. KETOROLAC TROMETHAMINE [Concomitant]
     Active Substance: KETOROLAC TROMETHAMINE
  6. LYRICA [Concomitant]
     Active Substance: PREGABALIN
  7. TAMSULOSIN [Concomitant]
     Active Substance: TAMSULOSIN
  8. TORSEMIDE [Concomitant]
     Active Substance: TORSEMIDE
  9. VERAPAMIL [Concomitant]
     Active Substance: VERAPAMIL HYDROCHLORIDE
  10. Vitamin c plus [Concomitant]
  11. VITAMIN D [Concomitant]
     Active Substance: VITAMIN D NOS

REACTIONS (2)
  - COVID-19 [Unknown]
  - SARS-CoV-2 test positive [Unknown]
